FAERS Safety Report 26080965 (Version 1)
Quarter: 2025Q4

REPORT INFORMATION
  Report Type: Spontaneous
  Country: US (occurrence: US)
  Receive Date: 20251124
  Receipt Date: 20251124
  Transmission Date: 20260118
  Serious: No
  Sender: SPECGX
  Company Number: US-SPECGX-T202500295

PATIENT
  Sex: Female

DRUGS (8)
  1. DEXTROAMPHETAMINE SACCHARATE, AMPHETAMINE ASPARTATE, DEXTROAMPHETAMINE [Suspect]
     Active Substance: AMPHETAMINE ASPARTATE\AMPHETAMINE SULFATE\DEXTROAMPHETAMINE SACCHARATE\DEXTROAMPHETAMINE SULFATE
     Indication: Attention deficit hyperactivity disorder
     Dosage: UNK
     Route: 065
  2. DEXTROAMPHETAMINE SACCHARATE, AMPHETAMINE ASPARTATE, DEXTROAMPHETAMINE [Suspect]
     Active Substance: AMPHETAMINE ASPARTATE\AMPHETAMINE SULFATE\DEXTROAMPHETAMINE SACCHARATE\DEXTROAMPHETAMINE SULFATE
     Dosage: 30 MILLIGRAM, TID
     Route: 065
     Dates: start: 20241218
  3. KLONOPIN [Concomitant]
     Active Substance: CLONAZEPAM
     Indication: Anxiety
     Dosage: 1 MILLIGRAM
     Route: 065
  4. KLONOPIN [Concomitant]
     Active Substance: CLONAZEPAM
     Indication: Panic disorder
  5. KLONOPIN [Concomitant]
     Active Substance: CLONAZEPAM
     Indication: Anxiety disorder
  6. DOXEPIN [Concomitant]
     Active Substance: DOXEPIN
     Indication: Insomnia
     Dosage: 10 MILLIGRAM, PRN
     Route: 065
  7. HYDROCORTISONE [Concomitant]
     Active Substance: HYDROCORTISONE
     Indication: Eczema
     Dosage: UNK (2.5%)
     Route: 065
  8. CELACYN [Concomitant]
     Indication: Scar
     Dosage: UNK
     Route: 065

REACTIONS (14)
  - Influenza like illness [Unknown]
  - Migraine [Unknown]
  - Nausea [Unknown]
  - Discomfort [Unknown]
  - Fatigue [Unknown]
  - Brain fog [Unknown]
  - Malaise [Unknown]
  - Sleep disorder [Unknown]
  - Illness [Unknown]
  - Hypermetabolism [Unknown]
  - Eye disorder [Unknown]
  - Depression [Unknown]
  - Intentional product use issue [Unknown]
  - Drug ineffective [Unknown]
